FAERS Safety Report 10217604 (Version 1)
Quarter: 2014Q2

REPORT INFORMATION
  Report Type: Spontaneous
  Country: US (occurrence: US)
  Receive Date: 20140604
  Receipt Date: 20140604
  Transmission Date: 20141212
  Serious: Yes (Death, Life-Threatening, Disabling, Other)
  Sender: FDA-Public Use
  Company Number: US-GILEAD-2014-0104261

PATIENT
  Sex: Female

DRUGS (3)
  1. LETAIRIS [Suspect]
     Indication: PULMONARY HYPERTENSION
     Dosage: 10 MG, QD
     Route: 065
     Dates: start: 20111209
  2. REMODULIN [Concomitant]
     Indication: PULMONARY HYPERTENSION
     Dates: start: 20111222, end: 20140524
  3. SILDENAFIL CITRATE [Concomitant]
     Indication: PULMONARY HYPERTENSION
     Dates: start: 20121211, end: 20140524

REACTIONS (1)
  - Glioblastoma [Fatal]
